FAERS Safety Report 8440166-X (Version None)
Quarter: 2012Q2

REPORT INFORMATION
  Report Type: 
  Country: None (occurrence: None)
  Receive Date: 20120615
  Receipt Date: 20120608
  Transmission Date: 20120825
  Serious: Yes (Hospitalization)
  Sender: FDA-Public Use
  Company Number: CO-ROCHE-1057032

PATIENT
  Sex: Female

DRUGS (3)
  1. WARFARIN SODIUM [Concomitant]
     Indication: THROMBOSIS
  2. LUCENTIS [Suspect]
     Indication: PRODUCT USED FOR UNKNOWN INDICATION
     Route: 050
     Dates: start: 20111012
  3. PHENYTOIN SODIUM CAP [Concomitant]
     Indication: THROMBOSIS
     Dosage: 2 TABLETS AT NIGHT

REACTIONS (1)
  - THROMBOSIS [None]
